FAERS Safety Report 5911892-9 (Version None)
Quarter: 2008Q4

REPORT INFORMATION
  Report Type: 
  Country: None (occurrence: None)
  Receive Date: 20081008
  Receipt Date: 20081006
  Transmission Date: 20090506
  Serious: Yes (Hospitalization, Other)
  Sender: FDA-Public Use
  Company Number: FR-BRISTOL-MYERS SQUIBB COMPANY-14360069

PATIENT
  Age: 84 Year
  Sex: Female

DRUGS (11)
  1. COAPROVEL [Suspect]
     Indication: HYPERTENSION
     Route: 048
     Dates: end: 20080623
  2. FLUDEX [Interacting]
     Indication: HYPERTENSION
     Route: 048
     Dates: end: 20080623
  3. LERCAN [Concomitant]
     Indication: HYPERTENSION
     Route: 048
  4. LECTIL [Concomitant]
     Indication: VERTIGO
     Route: 048
  5. KENZEN [Concomitant]
     Indication: HYPERTENSION
     Dosage: 1 DOSAGEFORM = 1 DOSE
     Route: 048
  6. OGAST [Concomitant]
     Indication: ULCER
     Route: 048
  7. PREVISCAN [Concomitant]
     Dosage: 1/2 DOSE DAILY DURING 2 DAYS + 1/4 DOSE DAILY DURING 3 DAYS
  8. ZOPICLONE [Concomitant]
     Dosage: 1 DOSAGEFORM = 1/2 DOSE
     Route: 048
  9. LEVOTHYROX [Concomitant]
  10. AMIODARONE [Concomitant]
     Indication: ARRHYTHMIA
     Route: 048
  11. RILMENIDINE [Concomitant]
     Indication: HYPERTENSION
     Route: 048

REACTIONS (6)
  - CONSTIPATION [None]
  - DIVERTICULITIS [None]
  - DRUG INTERACTION [None]
  - HYPOCHLORAEMIA [None]
  - HYPOKALAEMIA [None]
  - HYPONATRAEMIA [None]
